FAERS Safety Report 6703807-0 (Version None)
Quarter: 2010Q2

REPORT INFORMATION
  Report Type: 
  Country: None (occurrence: None)
  Receive Date: 20100430
  Receipt Date: 20100421
  Transmission Date: 20101027
  Serious: Yes (Hospitalization, Other)
  Sender: FDA-Public Use
  Company Number: FR-PFIZER INC-2010036345

PATIENT
  Age: 97 Year
  Sex: Female

DRUGS (10)
  1. AMLOR [Suspect]
     Dosage: 5 MG, 1X/DAY
     Route: 048
     Dates: start: 20070206
  2. CARDENSIEL [Suspect]
     Dosage: 1 DF, 1X/DAY
     Route: 048
     Dates: start: 20071003, end: 20090903
  3. ODRIK [Concomitant]
     Dosage: 2 MG, 1X/DAY
     Route: 048
     Dates: start: 20060217
  4. FUROSEMIDE [Concomitant]
     Dosage: 0.5 TABLET DAILY
     Dates: start: 20070206
  5. KARDEGIC [Concomitant]
     Dosage: 1 SACHET DAILY
     Dates: start: 20070206
  6. BUFLOMEDIL [Concomitant]
     Dosage: 2 TABLETS DAILY
     Dates: start: 20070413
  7. ZOPICLONE [Concomitant]
     Dosage: 0.5 TABLET DAILY
  8. PAROXETINE [Concomitant]
     Dosage: 0.5 TABLET DAILY
     Dates: start: 19960130
  9. ALPRAZOLAM [Concomitant]
     Dosage: 1.5 TABLETS DAILY
     Dates: start: 19951212
  10. ISKEDYL [Concomitant]
     Dosage: 2 DF, 1X/DAY
     Dates: start: 19820610

REACTIONS (1)
  - SYSTEMIC LUPUS ERYTHEMATOSUS [None]
